FAERS Safety Report 7312347-X (Version None)
Quarter: 2011Q1

REPORT INFORMATION
  Report Type: 
  Country: None (occurrence: None)
  Receive Date: 20110214
  Receipt Date: 20110131
  Transmission Date: 20110831
  Serious: Yes (Other)
  Sender: FDA-Public Use
  Company Number: DSJ-2011-02162

PATIENT
  Age: 53 Year
  Sex: Male

DRUGS (3)
  1. BENICAR [Suspect]
     Indication: HYPERTENSION
     Dosage: 40 MG (40 MG, 1 IN 1 D), PER ORAL, 80 MG (40 MG,2 IN 1 D), PER ORAL
     Route: 048
     Dates: start: 20110101
  2. BENICAR [Suspect]
     Indication: HYPERTENSION
     Dosage: 40 MG (40 MG, 1 IN 1 D), PER ORAL, 80 MG (40 MG,2 IN 1 D), PER ORAL
     Route: 048
     Dates: start: 20091001, end: 20110101
  3. MEDICINE FOR HYPERTENSION 5 MG [Concomitant]

REACTIONS (5)
  - HEADACHE [None]
  - DRUG INEFFECTIVE [None]
  - BLOOD PRESSURE SYSTOLIC INCREASED [None]
  - ERUCTATION [None]
  - OVERDOSE [None]
